FAERS Safety Report 5134631-0 (Version None)
Quarter: 2006Q4

REPORT INFORMATION
  Report Type: 
  Country: None (occurrence: None)
  Receive Date: 20061025
  Receipt Date: 20060614
  Transmission Date: 20070319
  Serious: Yes (Hospitalization)
  Sender: FDA-Public Use
  Company Number: JP-GLAXOSMITHKLINE-B0427725A

PATIENT
  Age: 55 Year
  Sex: Male
  Weight: 89 kg

DRUGS (2)
  1. ROSIGLITAZONE MALEATE [Suspect]
     Route: 048
     Dates: start: 20060106, end: 20060612
  2. FLOMOX [Suspect]
     Indication: FURUNCLE
     Dosage: 100MG THREE TIMES PER DAY
     Route: 048
     Dates: start: 20060601, end: 20060608

REACTIONS (3)
  - HEPATITIS ACUTE [None]
  - MALAISE [None]
  - NAUSEA [None]
